FAERS Safety Report 10957358 (Version 1)
Quarter: 2015Q1

REPORT INFORMATION
  Report Type: Spontaneous
  Country: US (occurrence: US)
  Receive Date: 20150326
  Receipt Date: 20150326
  Transmission Date: 20150721
  Serious: Yes (Other)
  Sender: FDA-Public Use
  Company Number: US-SA-2015SA003671

PATIENT
  Age: 47 Year
  Sex: Female

DRUGS (8)
  1. GABAPENTIN. [Concomitant]
     Active Substance: GABAPENTIN
  2. NORETHINDRONE. [Concomitant]
     Active Substance: NORETHINDRONE
  3. ACYCLOVIR. [Concomitant]
     Active Substance: ACYCLOVIR
  4. TOPIRAMATE. [Concomitant]
     Active Substance: TOPIRAMATE
  5. AUBAGIO [Suspect]
     Active Substance: TERIFLUNOMIDE
     Indication: MULTIPLE SCLEROSIS
     Route: 048
     Dates: start: 201404
  6. SUMATRIPTAN. [Concomitant]
     Active Substance: SUMATRIPTAN
  7. IRON [Concomitant]
     Active Substance: IRON
  8. ETHINYLESTRADIOL [Concomitant]
     Active Substance: ETHINYL ESTRADIOL

REACTIONS (1)
  - Alopecia [Not Recovered/Not Resolved]

NARRATIVE: CASE EVENT DATE: 2014
